FAERS Safety Report 5627130-0 (Version None)
Quarter: 2008Q1

REPORT INFORMATION
  Report Type: 
  Country: None (occurrence: None)
  Receive Date: 20080212
  Receipt Date: 20080212
  Transmission Date: 20080703
  Serious: Yes (Hospitalization)
  Sender: FDA-Public Use
  Company Number: None

PATIENT
  Age: 57 Year
  Sex: Female
  Weight: 138 kg

DRUGS (6)
  1. DOXAZOSIN MESYLATE [Suspect]
     Indication: HYPERTENSION
     Dosage: 2 MG QHS PO
     Route: 048
  2. AMLODIPINE [Concomitant]
  3. HYDROCHLOROTHIAZIDE [Concomitant]
  4. ACTOS/METFORMIN [Concomitant]
  5. SYNTHROID [Concomitant]
  6. LORATADINE [Concomitant]

REACTIONS (2)
  - ANGIOEDEMA [None]
  - SPEECH DISORDER [None]
